FAERS Safety Report 15472569 (Version 1)
Quarter: 2018Q4

REPORT INFORMATION
  Report Type: Spontaneous
  Country: US (occurrence: US)
  Receive Date: 20181008
  Receipt Date: 20181008
  Transmission Date: 20190205
  Serious: Yes (Other)
  Sender: FDA-Public Use
  Company Number: US-AUROBINDO-AUR-APL-2018-048691

PATIENT
  Age: 76 Year
  Sex: Female

DRUGS (2)
  1. CARBOPLATIN. [Suspect]
     Active Substance: CARBOPLATIN
     Indication: OESOPHAGEAL SQUAMOUS CELL CARCINOMA
     Dosage: UNK, EVERY WEEK
     Route: 065
  2. PACLITAXEL. [Suspect]
     Active Substance: PACLITAXEL
     Indication: OESOPHAGEAL SQUAMOUS CELL CARCINOMA
     Dosage: 50 MILLIGRAM/SQ. METER, EVERY WEEK
     Route: 065

REACTIONS (8)
  - Toxicity to various agents [Unknown]
  - Dysphagia [Unknown]
  - Soft tissue disorder [Unknown]
  - Stenosis [Unknown]
  - Dermatitis [Unknown]
  - Oesophageal stenosis [Unknown]
  - Mucosal inflammation [Unknown]
  - Dry mouth [Unknown]
